FAERS Safety Report 8763951 (Version 4)
Quarter: 2012Q4

REPORT INFORMATION
  Report Type: 
  Country: US (occurrence: US)
  Receive Date: 20120831
  Receipt Date: 20121219
  Transmission Date: 20130627
  Serious: Yes (Hospitalization, Disabling, Other)
  Sender: FDA-Public Use
  Company Number: US-009507513-1205USA00302

PATIENT

DRUGS (3)
  1. FOSAMAX [Suspect]
     Indication: OSTEOPOROSIS
     Dosage: UNK, qw
     Route: 048
  2. FOSAMAX [Suspect]
     Indication: PROPHYLAXIS
     Route: 048
  3. FOSAMAX [Suspect]
     Indication: OSTEOPOROSIS

REACTIONS (59)
  - Femur fracture [Unknown]
  - Bone density decreased [Unknown]
  - Osteoporosis [Unknown]
  - Fracture delayed union [Unknown]
  - Hip fracture [Unknown]
  - Pelvic fracture [Unknown]
  - Fall [Unknown]
  - Intramedullary rod insertion [Unknown]
  - Chronic obstructive pulmonary disease [Unknown]
  - Rib fracture [Unknown]
  - Anaemia [Unknown]
  - Transfusion [Unknown]
  - Pneumonia [Unknown]
  - Adverse drug reaction [Unknown]
  - Metabolic encephalopathy [Unknown]
  - Pneumonia [Unknown]
  - Laryngitis [Unknown]
  - Renal failure chronic [Unknown]
  - Hypertension [Unknown]
  - Thyroidectomy [Unknown]
  - Hypothyroidism [Unknown]
  - Macular degeneration [Unknown]
  - Vitamin D deficiency [Unknown]
  - Constipation [Unknown]
  - Dyslipidaemia [Unknown]
  - Dementia [Unknown]
  - Musculoskeletal pain [Unknown]
  - Fall [Unknown]
  - Nausea [Unknown]
  - Mental status changes [Unknown]
  - Granuloma [Unknown]
  - Chronic obstructive pulmonary disease [Unknown]
  - Rib fracture [Recovered/Resolved]
  - Syncope [Unknown]
  - Hypotension [Unknown]
  - Adverse event [Unknown]
  - Haematoma [Unknown]
  - Erythema [Unknown]
  - Diverticulum [Unknown]
  - Hepatic lesion [Unknown]
  - Dysphagia [Unknown]
  - Nausea [Unknown]
  - Constipation [Unknown]
  - Fall [Unknown]
  - Laceration [Unknown]
  - Spinal compression fracture [Unknown]
  - Peripheral vascular disorder [Unknown]
  - Arterial disorder [Unknown]
  - Chronic obstructive pulmonary disease [Unknown]
  - Arteriosclerosis [Unknown]
  - Lobar pneumonia [Not Recovered/Not Resolved]
  - Atelectasis [Unknown]
  - Lung infiltration [Unknown]
  - Back pain [Unknown]
  - Musculoskeletal pain [Unknown]
  - Meningioma [Unknown]
  - Cerebral ischaemia [Unknown]
  - Scoliosis [Unknown]
  - Joint injury [Unknown]
